FAERS Safety Report 4483396-4 (Version None)
Quarter: 2004Q4

REPORT INFORMATION
  Report Type: 
  Country: None (occurrence: None)
  Receive Date: 20041020
  Receipt Date: 20041005
  Transmission Date: 20050328
  Serious: Yes (Death)
  Sender: FDA-Public Use
  Company Number: MK200403-0083-1

PATIENT
  Age: 69 Year
  Sex: Male

DRUGS (1)
  1. OPTIRAY 240 [Suspect]
     Indication: COMPUTERISED TOMOGRAM
     Dosage: 100 ML, ONCE
     Dates: start: 20030730, end: 20030730

REACTIONS (5)
  - CARDIAC FAILURE ACUTE [None]
  - CONTRAST MEDIA REACTION [None]
  - ERYTHEMA [None]
  - LOSS OF CONSCIOUSNESS [None]
  - SHOCK [None]
